FAERS Safety Report 9251218 (Version 1)
Quarter: 2013Q1

REPORT INFORMATION
  Report Type: Spontaneous
  Country: US (occurrence: None)
  Receive Date: 20130305
  Receipt Date: 20130305
  Transmission Date: 20140127
  Serious: Yes (Hospitalization)
  Sender: FDA-Public Use
  Company Number: 163-21880-12100068

PATIENT
  Age: 65 Year
  Sex: Male
  Weight: 91.63 kg

DRUGS (11)
  1. REVLIMID [Suspect]
     Indication: PLASMA CELL MYELOMA
     Dosage: 15MG, 21 IN 28 D, PO
     Route: 048
     Dates: start: 20101213
  2. ACYCLOVIR (ACICLOVIR) (UNKNOWN) [Concomitant]
  3. DEXAMETHASONE (DEXAMETHASONE) (UNKNOWN) [Concomitant]
  4. K-DUR (POTASSIUM CHLORIDE) (UNKNOWN) [Concomitant]
  5. LORAZEPAM (LORAZEPAM) (UNKNOWN) [Concomitant]
  6. PANTOPRAZOLE [Concomitant]
  7. POTASSIUM (POTASSIUM) (UNKNOWN) [Concomitant]
  8. PROCHLORPERAZINE (PROCHLORPERAZINE) (UNKNOWN) [Concomitant]
  9. PROTONIX (UNKNOWN) [Concomitant]
  10. VELCADE [Concomitant]
  11. ZOMETA (ZOLEDRONIC ACID) (UNKNOWN) [Concomitant]

REACTIONS (1)
  - Pulmonary embolism [None]
